FAERS Safety Report 5763977-8 (Version None)
Quarter: 2008Q2

REPORT INFORMATION
  Report Type: 
  Country: None (occurrence: None)
  Receive Date: 20080609
  Receipt Date: 20080324
  Transmission Date: 20081010
  Serious: No
  Sender: FDA-Public Use
  Company Number: 002#2#2008-00147

PATIENT
  Age: 74 Year
  Sex: Male
  Weight: 68.0396 kg

DRUGS (4)
  1. NEUPRO [Suspect]
     Indication: PARKINSON'S DISEASE
     Dosage: 2MG/24H,1 IN 1 D,TRANSDERMAL ; 4MG.24H,1 IN 1 D,TRANDERMAL
     Route: 062
     Dates: start: 20070701, end: 20070701
  2. NEUPRO [Suspect]
     Indication: PARKINSON'S DISEASE
     Dosage: 2MG/24H,1 IN 1 D,TRANSDERMAL ; 4MG.24H,1 IN 1 D,TRANDERMAL
     Route: 062
     Dates: start: 20070701
  3. PROVIGIL [Concomitant]
  4. AZILEX [Concomitant]

REACTIONS (2)
  - SOMNOLENCE [None]
  - VOMITING [None]
